FAERS Safety Report 21844538 (Version 1)
Quarter: 2023Q1

REPORT INFORMATION
  Report Type: Spontaneous
  Country: US (occurrence: US)
  Receive Date: 20230110
  Receipt Date: 20230110
  Transmission Date: 20230418
  Serious: Yes (Hospitalization)
  Sender: FDA-Public Use
  Company Number: US-FreseniusKabi-FK202300268

PATIENT
  Age: 21 Year
  Sex: Female
  Weight: 58 kg

DRUGS (4)
  1. LEUCOVORIN [Suspect]
     Active Substance: LEUCOVORIN
     Indication: Gastric cancer
     Dosage: INTRAVENOUS, 2400 MG/M2, ONCE OVER 46 HOURS?14-AUG-2020 TO 18-NOV-2021 ; 1 YEAR 3 MONTHS 5 DAYS
     Route: 042
     Dates: start: 20200814, end: 20211118
  2. OXALIPLATIN [Suspect]
     Active Substance: OXALIPLATIN
     Indication: Gastric cancer
     Dosage: INTRAVENOUS, 85 MG/MG ONCE.?14-AUG-2020 TO 14-JAN-2021 5 MONTHS 1 DAY
     Route: 042
     Dates: start: 20200814, end: 20210114
  3. FLUOROURACIL [Suspect]
     Active Substance: FLUOROURACIL
     Indication: Gastric cancer
     Dosage: INTRAVENOUS, 400 MG/M2, ONCE OVER 120 MINUTES.?14-AUG-2020 TO 18-NOV-2021; 1 YEAR 3 MONTHS 5 DAYS
     Route: 042
     Dates: start: 20200814, end: 20211118
  4. INVESTIGATIONAL PRODUCT [Suspect]
     Active Substance: INVESTIGATIONAL PRODUCT
     Indication: Gastric cancer
     Dosage: STUDY DRUG: IMAB362 BLINDED (CODE NOT BROKEN)?14-AUG-2020 TO 18-NOV-2021; 1 YEAR 3 MONTHS 5 DAYS
     Route: 042
     Dates: start: 20200814, end: 20211118

REACTIONS (1)
  - Abdominal pain [Unknown]

NARRATIVE: CASE EVENT DATE: 20211220
